FAERS Safety Report 7222439-1 (Version None)
Quarter: 2011Q1

REPORT INFORMATION
  Report Type: 
  Country: None (occurrence: None)
  Receive Date: 20110104
  Receipt Date: 20101220
  Transmission Date: 20110831
  Serious: Yes (Hospitalization, Other)
  Sender: FDA-Public Use
  Company Number: TPH-00248

PATIENT
  Age: 31 Year
  Sex: Female

DRUGS (2)
  1. UNCODEABLE UNCLASSIFIABLE^ (UNCODEABLE ^UNCLASSIFIABLE^) [Concomitant]
  2. TRIQUILAR (ETHINYLESTRADIOL + LEVONORGESTREL) COATED TABLET [Suspect]
     Indication: CONTRACEPTION
     Dosage: ORAL
     Route: 048
     Dates: start: 20090301, end: 20091101

REACTIONS (5)
  - PREMATURE LABOUR [None]
  - PREMATURE RUPTURE OF MEMBRANES [None]
  - ANTEPARTUM HAEMORRHAGE [None]
  - PREGNANCY ON ORAL CONTRACEPTIVE [None]
  - AMENORRHOEA [None]
